FAERS Safety Report 4719611-9 (Version None)
Quarter: 2005Q3

REPORT INFORMATION
  Report Type: 
  Country: None (occurrence: None)
  Receive Date: 20050721
  Receipt Date: 20040413
  Transmission Date: 20060218
  Serious: No
  Sender: FDA-Public Use
  Company Number: US-GLAXOSMITHKLINE-A0508219A

PATIENT

DRUGS (5)
  1. AVANDIA [Suspect]
     Dosage: 4MG PER DAY
     Route: 048
  2. EFFEXOR [Concomitant]
  3. NORVASC [Concomitant]
  4. ISOSORBIDE MONONITRATE [Concomitant]
  5. ASPIRIN [Concomitant]

REACTIONS (1)
  - ADVERSE EVENT [None]
